FAERS Safety Report 6619337-0 (Version None)
Quarter: 2010Q1

REPORT INFORMATION
  Report Type: 
  Country: None (occurrence: None)
  Receive Date: 20100303
  Receipt Date: 20100218
  Transmission Date: 20100710
  Serious: Yes (Hospitalization)
  Sender: FDA-Public Use
  Company Number: 1000012058

PATIENT
  Age: 87 Year
  Sex: Female

DRUGS (5)
  1. MEMANTINE HCL [Suspect]
     Dates: start: 20091222
  2. REMINYL [Concomitant]
  3. EQUANIL [Concomitant]
  4. PLAVIX [Concomitant]
  5. FORLAX [Concomitant]

REACTIONS (3)
  - CHOLESTASIS [None]
  - CYTOLYTIC HEPATITIS [None]
  - HEPATITIS [None]
